FAERS Safety Report 13006101 (Version 2)
Quarter: 2017Q1

REPORT INFORMATION
  Report Type: Spontaneous
  Country: PK (occurrence: PK)
  Receive Date: 20161207
  Receipt Date: 20170118
  Transmission Date: 20170428
  Serious: Yes (Death, Hospitalization)
  Sender: FDA-Public Use
  Company Number: PK-JNJFOC-20161129263

PATIENT
  Age: 40 Year
  Sex: Female
  Weight: 35 kg

DRUGS (8)
  1. BEDAQUILINE [Suspect]
     Active Substance: BEDAQUILINE
     Indication: TUBERCULOSIS
     Route: 048
     Dates: start: 20161005
  2. ETHIONAMIDE [Suspect]
     Active Substance: ETHIONAMIDE
     Indication: TUBERCULOSIS
     Route: 048
     Dates: start: 20161005, end: 20161121
  3. AMIKACIN [Suspect]
     Active Substance: AMIKACIN
     Indication: TUBERCULOSIS
     Route: 030
     Dates: start: 20151005, end: 20161121
  4. MOXIFLOXACIN. [Suspect]
     Active Substance: MOXIFLOXACIN
     Indication: TUBERCULOSIS
     Route: 048
     Dates: start: 20161005, end: 20161121
  5. PYRAZINAMIDE. [Suspect]
     Active Substance: PYRAZINAMIDE
     Indication: TUBERCULOSIS
     Route: 048
     Dates: start: 20161005, end: 20161121
  6. BEDAQUILINE [Suspect]
     Active Substance: BEDAQUILINE
     Indication: TUBERCULOSIS
     Route: 048
     Dates: end: 20161121
  7. VITAMIN B6 [Concomitant]
     Active Substance: PYRIDOXINE HYDROCHLORIDE
     Indication: NEUROPATHY PERIPHERAL
     Dates: start: 20161005, end: 20161121
  8. CYCLOSERINE. [Suspect]
     Active Substance: CYCLOSERINE
     Indication: TUBERCULOSIS
     Route: 048
     Dates: start: 20161005, end: 20161121

REACTIONS (2)
  - Tuberculosis [Fatal]
  - Hepatitis C [Fatal]

NARRATIVE: CASE EVENT DATE: 20161121
